FAERS Safety Report 6913974-1 (Version None)
Quarter: 2010Q3

REPORT INFORMATION
  Report Type: 
  Country: None (occurrence: None)
  Receive Date: 20100809
  Receipt Date: 20100726
  Transmission Date: 20110219
  Serious: Yes (Other)
  Sender: FDA-Public Use
  Company Number: PHHY2010MX49365

PATIENT
  Sex: Female

DRUGS (2)
  1. DIOVAN HCT [Suspect]
     Dosage: 1 TABLET DAILY
     Route: 048
     Dates: start: 20040726
  2. VOLTAREN [Concomitant]

REACTIONS (2)
  - ARTHRALGIA [None]
  - JOINT EFFUSION [None]
